FAERS Safety Report 4746621-8 (Version None)
Quarter: 2005Q3

REPORT INFORMATION
  Report Type: 
  Country: None (occurrence: None)
  Receive Date: 20050815
  Receipt Date: 20050729
  Transmission Date: 20060218
  Serious: Yes (Hospitalization)
  Sender: FDA-Public Use
  Company Number: RENA-10697

PATIENT
  Age: 48 Year
  Sex: Male

DRUGS (8)
  1. PHOSBLOCK [Suspect]
     Indication: HYPERPHOSPHATAEMIA
     Dosage: 2 G QD PO
     Route: 048
     Dates: start: 20030627, end: 20031014
  2. DICLOFENAC SODIUM [Suspect]
     Indication: BACK PAIN
     Dosage: 50 MG QD PO
     Route: 048
     Dates: start: 20030306, end: 20031014
  3. AMLODIPINE BESYLATE [Concomitant]
  4. SENNOSIDE [Concomitant]
  5. DILTIAZEM HYDROCHLORIDE [Concomitant]
  6. CALCITRIOL [Concomitant]
  7. HYDROXYZINE PAMOATE [Concomitant]
  8. EPOETIN ALFA [Concomitant]

REACTIONS (4)
  - ANAEMIA [None]
  - DUODENAL ULCER [None]
  - FEELING ABNORMAL [None]
  - GASTROINTESTINAL HAEMORRHAGE [None]
